FAERS Safety Report 7672325-8 (Version None)
Quarter: 2011Q3

REPORT INFORMATION
  Report Type: 
  Country: None (occurrence: None)
  Receive Date: 20110809
  Receipt Date: 20110805
  Transmission Date: 20111222
  Serious: Yes (Hospitalization, Other)
  Sender: FDA-Public Use
  Company Number: US-PFIZER INC-2011118639

PATIENT
  Sex: Female

DRUGS (3)
  1. GEODON [Concomitant]
     Indication: SCHIZOPHRENIA
     Dosage: UNK
     Dates: start: 19910101
  2. CHANTIX [Suspect]
     Indication: SMOKING CESSATION THERAPY
     Dosage: 1 MG, UNK
     Dates: start: 20090202, end: 20090301
  3. RISPERIDONE [Concomitant]
     Indication: SCHIZOPHRENIA
     Dosage: UNK
     Dates: start: 19910101

REACTIONS (7)
  - SCHIZOAFFECTIVE DISORDER [None]
  - MENTAL DISORDER [None]
  - DEPRESSION [None]
  - ANXIETY [None]
  - EMOTIONAL DISTRESS [None]
  - SUICIDAL IDEATION [None]
  - INSOMNIA [None]
